FAERS Safety Report 4552817-0 (Version None)
Quarter: 2005Q1

REPORT INFORMATION
  Report Type: 
  Country: None (occurrence: None)
  Receive Date: 20050114
  Receipt Date: 20041231
  Transmission Date: 20050727
  Serious: Yes (Other)
  Sender: FDA-Public Use
  Company Number: GBWYE201615NOV04

PATIENT
  Sex: Female

DRUGS (6)
  1. ENBREL [Suspect]
     Indication: RHEUMATOID ARTHRITIS
     Route: 058
  2. VENLAFAXINE HCL [Suspect]
     Dosage: 150MG
     Route: 048
  3. OMEPRAZOLE [Concomitant]
     Dosage: 20MG
     Route: 048
  4. TRAMADOL HCL [Concomitant]
     Dosage: 100MG
     Route: 048
  5. AMITRIPTYLINE [Concomitant]
     Dosage: 50MG
     Route: 048
  6. LORATADINE [Concomitant]
     Dosage: 10MG
     Route: 048

REACTIONS (3)
  - ABORTION SPONTANEOUS [None]
  - DRUG EXPOSURE DURING PREGNANCY [None]
  - PREGNANCY [None]
